FAERS Safety Report 17605477 (Version 6)
Quarter: 2021Q3

REPORT INFORMATION
  Report Type: Spontaneous
  Country: US (occurrence: US)
  Receive Date: 20200331
  Receipt Date: 20210927
  Transmission Date: 20211014
  Serious: Yes (Hospitalization, Other)
  Sender: FDA-Public Use
  Company Number: US-SA-2020SA077883

PATIENT
  Age: 63 Year
  Sex: Male
  Weight: 104.32 kg

DRUGS (15)
  1. DILTIAZEM. [Concomitant]
     Active Substance: DILTIAZEM
  2. HEPARIN [Concomitant]
     Active Substance: HEPARIN SODIUM
  3. EPINEPHRINE. [Concomitant]
     Active Substance: EPINEPHRINE
  4. PAROXETINE. [Concomitant]
     Active Substance: PAROXETINE
  5. LISINOPRIL. [Concomitant]
     Active Substance: LISINOPRIL
  6. STERILE WATER [Concomitant]
     Active Substance: WATER
     Route: 065
  7. NORMAL SALINE [Concomitant]
     Active Substance: SODIUM CHLORIDE
     Route: 065
  8. LUMIZYME [Suspect]
     Active Substance: ALGLUCOSIDASE ALFA
     Indication: GLYCOGEN STORAGE DISORDER
     Dosage: 17.25 MG/KG (1800 MG), QOW
     Route: 042
     Dates: start: 20140415
  9. ALBUTEROL SULFATE. [Concomitant]
     Active Substance: ALBUTEROL SULFATE
  10. ZINC. [Concomitant]
     Active Substance: ZINC
     Route: 065
  11. SODIUM CHLORIDE 0.9% [Concomitant]
     Active Substance: SODIUM CHLORIDE
  12. ALBUTEROL [SALBUTAMOL] [Concomitant]
     Active Substance: ALBUTEROL
  13. DIPHENHYDRAMINE. [Concomitant]
     Active Substance: DIPHENHYDRAMINE
  14. ONE?A?DAY [MINERALS NOS;VITAMINS NOS] [Concomitant]
  15. HYDROCHLOROTHIAZIDE. [Concomitant]
     Active Substance: HYDROCHLOROTHIAZIDE

REACTIONS (5)
  - Nasal congestion [Unknown]
  - Pneumonia [Unknown]
  - Influenza [Unknown]
  - Nasopharyngitis [Unknown]
  - Unevaluable event [Unknown]

NARRATIVE: CASE EVENT DATE: 2021
